FAERS Safety Report 11298417 (Version 1)
Quarter: 2015Q3

REPORT INFORMATION
  Report Type: Spontaneous
  Country: US (occurrence: US)
  Receive Date: 20150722
  Receipt Date: 20150722
  Transmission Date: 20151125
  Serious: No
  Sender: FDA-Public Use
  Company Number: US-ELI_LILLY_AND_COMPANY-US201108003816

PATIENT
  Age: 1 Year
  Sex: Male

DRUGS (4)
  1. HUMATROPE [Suspect]
     Active Substance: SOMATROPIN
     Indication: PRADER-WILLI SYNDROME
     Dosage: 0.3 MG, QD
     Route: 058
     Dates: start: 20110505
  2. PEDIASURE [Concomitant]
     Active Substance: VITAMINS
     Dosage: 700 MG, QD
  3. STARCH [Concomitant]
     Active Substance: STARCH
     Dosage: UNK
  4. D-VI-SOL [Concomitant]
     Dosage: 400 IU, QD

REACTIONS (1)
  - Hypertrichosis [Not Recovered/Not Resolved]

NARRATIVE: CASE EVENT DATE: 20110615
